FAERS Safety Report 21750048 (Version 1)
Quarter: 2022Q4

REPORT INFORMATION
  Report Type: Spontaneous
  Country: FR (occurrence: FR)
  Receive Date: 20221219
  Receipt Date: 20221219
  Transmission Date: 20230113
  Serious: Yes (Death, Other)
  Sender: FDA-Public Use
  Company Number: FR-BAXTER-2020BAX014253

PATIENT
  Age: 63 Year
  Sex: Male

DRUGS (5)
  1. DEXAMETHASONE [Suspect]
     Active Substance: DEXAMETHASONE
     Indication: Product used for unknown indication
     Dosage: 2 DOSE(S)/WEEK 2 WEEK(S)/CYCLE; LINE NUMBER 4
     Route: 065
     Dates: end: 20171107
  2. DOXORUBICIN HYDROCHLORIDE [Suspect]
     Active Substance: DOXORUBICIN HYDROCHLORIDE
     Indication: Plasma cell myeloma
     Dosage: 1 WEEK(S)/CYCLE
     Route: 065
     Dates: end: 20180326
  3. DARATUMUMAB [Suspect]
     Active Substance: DARATUMUMAB
     Indication: Product used for unknown indication
     Dosage: 3 WEEK(S)/CYCLE; LINE NUMBER 4;
     Route: 065
     Dates: end: 20171107
  4. BORTEZOMIB [Suspect]
     Active Substance: BORTEZOMIB
     Indication: Product used for unknown indication
     Dosage: 2 DOSE(S)/WEEK 2 WEEK(S)/CYCLE; LINE NUMBER 4;
     Route: 065
     Dates: end: 20171107
  5. IXAZOMIB [Suspect]
     Active Substance: IXAZOMIB
     Indication: Plasma cell myeloma
     Dosage: 3 WEEK(S)/CYCLE
     Route: 065
     Dates: end: 20180326

REACTIONS (2)
  - Acute kidney injury [Unknown]
  - Disease progression [Fatal]

NARRATIVE: CASE EVENT DATE: 20171107
